FAERS Safety Report 8220250-6 (Version None)
Quarter: 2012Q1

REPORT INFORMATION
  Report Type: 
  Country: None (occurrence: None)
  Receive Date: 20120316
  Receipt Date: 20120228
  Transmission Date: 20120608
  Serious: Yes (Death, Other)
  Sender: FDA-Public Use
  Company Number: FK201200697

PATIENT
  Age: 41 Year
  Sex: Male

DRUGS (9)
  1. DOXORUBICIN HCL [Suspect]
     Indication: BURKITT'S LYMPHOMA
  2. EMTRICITABINE [Suspect]
     Indication: HIV INFECTION
  3. EFAVIRENZ [Concomitant]
  4. LAMIVUDINE (LAMIVUDINE) (LAMIVUDINE) [Concomitant]
  5. TENOFOVIR DISOPROXIL FUMARATE [Suspect]
     Indication: HIV INFECTION
  6. LOPINAVIR (LOPINAVIR) (LOPINAVIR) [Suspect]
     Indication: HIV INFECTION
  7. RITONAVIR [Suspect]
     Indication: HIV INFECTION
  8. DIDANOSINE (DIDANOSINE) (DIDANOSINE) [Concomitant]
  9. ETOPOSIDE [Suspect]
     Indication: BURKITT'S LYMPHOMA

REACTIONS (13)
  - PYREXIA [None]
  - HAEMORRHAGE [None]
  - RESPIRATORY FAILURE [None]
  - DIARRHOEA [None]
  - COAGULOPATHY [None]
  - HEPATIC NECROSIS [None]
  - RENAL FAILURE [None]
  - ACUTE HEPATIC FAILURE [None]
  - CONDITION AGGRAVATED [None]
  - PNEUMOCYSTIS JIROVECI PNEUMONIA [None]
  - WHITE BLOOD CELL COUNT DECREASED [None]
  - HYPOTENSION [None]
  - ADENOVIRAL HEPATITIS [None]
